FAERS Safety Report 4627189-3 (Version None)
Quarter: 2005Q1

REPORT INFORMATION
  Report Type: 
  Country: None (occurrence: None)
  Receive Date: 20050331
  Receipt Date: 20050321
  Transmission Date: 20050727
  Serious: Yes (Hospitalization)
  Sender: FDA-Public Use
  Company Number: 2005048422

PATIENT
  Age: 41 Year
  Sex: Female
  Weight: 58.9676 kg

DRUGS (4)
  1. SOLU-CORTEF [Suspect]
     Indication: SCAR
     Dosage: 250 MG (1 IN 1 D), INTRAMUSCULAR
     Route: 030
     Dates: start: 20050218, end: 20050218
  2. DICLOFENAC SODIUM [Concomitant]
  3. METAXALONE [Concomitant]
  4. LORAZEPAM [Concomitant]

REACTIONS (5)
  - ABDOMINAL PAIN [None]
  - ASTHENIA [None]
  - DIARRHOEA [None]
  - INJECTION SITE PAIN [None]
  - NAUSEA [None]
